FAERS Safety Report 7218183-7 (Version None)
Quarter: 2011Q1

REPORT INFORMATION
  Report Type: 
  Country: None (occurrence: None)
  Receive Date: 20110110
  Receipt Date: 20110105
  Transmission Date: 20110831
  Serious: Yes (Hospitalization)
  Sender: FDA-Public Use
  Company Number: CA-ABBOTT-10P-028-0689315-00

PATIENT
  Sex: Female
  Weight: 41.3 kg

DRUGS (2)
  1. HUMIRA [Suspect]
     Indication: CROHN'S DISEASE
     Route: 058
     Dates: start: 20080404
  2. HUMIRA [Suspect]
     Dates: start: 20101117

REACTIONS (9)
  - OROPHARYNGEAL PAIN [None]
  - MALAISE [None]
  - FATIGUE [None]
  - VOMITING [None]
  - SOMNOLENCE [None]
  - DYSPEPSIA [None]
  - ASTHENIA [None]
  - NAUSEA [None]
  - DIZZINESS [None]
